FAERS Safety Report 19404107 (Version 3)
Quarter: 2021Q3

REPORT INFORMATION
  Report Type: Spontaneous
  Country: DE (occurrence: DE)
  Receive Date: 20210610
  Receipt Date: 20210701
  Transmission Date: 20211014
  Serious: Yes (Hospitalization, Disabling, Other)
  Sender: FDA-Public Use
  Company Number: DE-BIOGEN-2021BI01017192

PATIENT
  Age: 46 Year
  Sex: Female

DRUGS (11)
  1. TYSABRI [Suspect]
     Active Substance: NATALIZUMAB
     Indication: MULTIPLE SCLEROSIS
     Route: 042
  2. GABAPENTIN. [Concomitant]
     Active Substance: GABAPENTIN
     Indication: MULTIPLE SCLEROSIS
     Route: 065
     Dates: start: 2018
  3. FAMPYRA [Suspect]
     Active Substance: DALFAMPRIDINE
     Route: 048
  4. ROPINIROLE. [Concomitant]
     Active Substance: ROPINIROLE
     Route: 065
     Dates: start: 2017
  5. TYSABRI [Suspect]
     Active Substance: NATALIZUMAB
     Route: 042
     Dates: start: 20130121
  6. RESTEX [Concomitant]
     Active Substance: BENSERAZIDE\LEVODOPA
     Route: 048
     Dates: start: 2014
  7. TYSABRI [Suspect]
     Active Substance: NATALIZUMAB
     Route: 042
  8. FAMPYRA [Suspect]
     Active Substance: DALFAMPRIDINE
     Indication: MULTIPLE SCLEROSIS
     Route: 048
  9. RESTEX [Concomitant]
     Active Substance: BENSERAZIDE\LEVODOPA
     Indication: RESTLESS LEGS SYNDROME
     Route: 048
     Dates: start: 2013
  10. RESTEX [Concomitant]
     Active Substance: BENSERAZIDE\LEVODOPA
     Route: 065
     Dates: start: 2013
  11. ROPINIROLE. [Concomitant]
     Active Substance: ROPINIROLE
     Indication: RESTLESS LEGS SYNDROME
     Route: 065

REACTIONS (5)
  - Lymphocyte count increased [Not Recovered/Not Resolved]
  - Myelodysplastic syndrome [Unknown]
  - Neutrophil count decreased [Not Recovered/Not Resolved]
  - White blood cell count increased [Not Recovered/Not Resolved]
  - Prescribed underdose [Not Recovered/Not Resolved]

NARRATIVE: CASE EVENT DATE: 20210526
